FAERS Safety Report 9820401 (Version 2)
Quarter: 2014Q4

REPORT INFORMATION
  Report Type: Spontaneous
  Country: US (occurrence: None)
  Receive Date: 20131028
  Receipt Date: 20141015
  Transmission Date: 20150529
  Serious: Yes (Other)
  Sender: FDA-Public Use
  Company Number: 2013US001554

PATIENT
  Age: 63 Year
  Sex: Female
  Weight: 85 kg

DRUGS (7)
  1. POTASSIUM (POTASSIUM) [Concomitant]
     Active Substance: POTASSIUM
  2. CELEXA [Concomitant]
     Active Substance: CITALOPRAM HYDROBROMIDE
  3. OXYCODONE (OXYCODONE) [Concomitant]
     Active Substance: OXYCODONE
  4. ICLUSIG [Suspect]
     Active Substance: PONATINIB
     Indication: CHRONIC MYELOID LEUKAEMIA
     Route: 048
     Dates: start: 20130418, end: 20130420
  5. NEXIUM I.V. [Concomitant]
     Active Substance: ESOMEPRAZOLE SODIUM
  6. SYNTHROID [Concomitant]
     Active Substance: LEVOTHYROXINE SODIUM
  7. LASIX [Concomitant]
     Active Substance: FUROSEMIDE

REACTIONS (7)
  - Liver function test abnormal [None]
  - Amylase increased [None]
  - Pancreatitis [None]
  - Abdominal pain upper [None]
  - Lipase increased [None]
  - Abdominal distension [None]
  - Headache [None]

NARRATIVE: CASE EVENT DATE: 20130420
